FAERS Safety Report 10508436 (Version 2)
Quarter: 2015Q1

REPORT INFORMATION
  Report Type: Spontaneous
  Country: US (occurrence: US)
  Receive Date: 20141009
  Receipt Date: 20150115
  Transmission Date: 20150720
  Serious: No
  Sender: FDA-Public Use
  Company Number: US-ASTELLAS-2014US012161

PATIENT
  Age: 83 Year
  Sex: Female

DRUGS (5)
  1. MYRBETRIQ [Suspect]
     Active Substance: MIRABEGRON
     Indication: INCONTINENCE
     Route: 065
     Dates: start: 20140904
  2. DRUGS USED IN DIABETES [Concomitant]
     Active Substance: UNSPECIFIED INGREDIENT
     Indication: DIABETES MELLITUS
     Dosage: UNK UNK, UNKNOWN FREQ.
     Route: 065
  3. ASPIRIN. [Concomitant]
     Active Substance: ASPIRIN
     Indication: PRODUCT USED FOR UNKNOWN INDICATION
     Dosage: UNK UNK, UNKNOWN FREQ.
     Route: 065
  4. MYRBETRIQ [Suspect]
     Active Substance: MIRABEGRON
     Indication: BLADDER DISORDER
  5. UNSPECIFIED BLOOD PRESSURE MEDICATION [Concomitant]
     Indication: BLOOD PRESSURE
     Dosage: UNK, UNKNOWN FREQ.
     Route: 065

REACTIONS (4)
  - Headache [Unknown]
  - Abdominal discomfort [Unknown]
  - Dizziness [Unknown]
  - Drug ineffective [Unknown]

NARRATIVE: CASE EVENT DATE: 20140905
